FAERS Safety Report 12261968 (Version 1)
Quarter: 2016Q2

REPORT INFORMATION
  Report Type: Spontaneous
  Country: US (occurrence: None)
  Receive Date: 20160412
  Receipt Date: 20160412
  Transmission Date: 20160815
  Serious: No
  Sender: FDA-Public Use
  Company Number: None

PATIENT
  Sex: Female

DRUGS (1)
  1. HUMIRA [Suspect]
     Active Substance: ADALIMUMAB
     Indication: MYOPATHY
     Dosage: 40MG/0.8 WEEKLY
     Dates: start: 20150504, end: 20160313

REACTIONS (3)
  - Influenza like illness [None]
  - Platelet count decreased [None]
  - Pyrexia [None]
